FAERS Safety Report 7401820-1 (Version None)
Quarter: 2011Q1

REPORT INFORMATION
  Report Type: 
  Country: None (occurrence: None)
  Receive Date: 20110329
  Receipt Date: 20110317
  Transmission Date: 20110831
  Serious: Yes (Other)
  Sender: FDA-Public Use
  Company Number: 029748

PATIENT
  Age: 66 Year
  Sex: Female

DRUGS (3)
  1. NASONEX [Concomitant]
  2. XYZAL [Suspect]
     Indication: RHINITIS ALLERGIC
     Dosage: (5 MG QD ORAL)
     Route: 048
     Dates: start: 20110301
  3. PATANOL [Concomitant]

REACTIONS (1)
  - METRORRHAGIA [None]
